FAERS Safety Report 7980900-6 (Version None)
Quarter: 2011Q4

REPORT INFORMATION
  Report Type: 
  Country: None (occurrence: None)
  Receive Date: 20111215
  Receipt Date: 20111206
  Transmission Date: 20120403
  Serious: Yes (Other)
  Sender: FDA-Public Use
  Company Number: NL-AMGEN-NLDSP2011065630

PATIENT
  Age: 61 Year
  Sex: Female

DRUGS (7)
  1. PLAQUENIL [Concomitant]
     Dosage: UNK
  2. PANTOPRAZOLE [Concomitant]
     Dosage: UNK
  3. METHOTREXATE SODIUM [Concomitant]
     Dosage: UNK
  4. ENBREL [Suspect]
     Indication: RHEUMATOID ARTHRITIS
     Dosage: 50 MG, WEEKLY
     Dates: start: 20111118
  5. FOLIC ACID [Concomitant]
     Dosage: UNK
  6. SPIRONOLACTONE [Concomitant]
     Dosage: UNK
  7. PARACETAMOL WITH CODEINE PHOSPHATE [Concomitant]
     Dosage: UNK

REACTIONS (1)
  - CHRONIC OBSTRUCTIVE PULMONARY DISEASE [None]
